FAERS Safety Report 26026966 (Version 1)
Quarter: 2025Q4

REPORT INFORMATION
  Report Type: Spontaneous
  Country: JP (occurrence: JP)
  Receive Date: 20251111
  Receipt Date: 20251111
  Transmission Date: 20260117
  Serious: Yes (Other)
  Sender: PFIZER
  Company Number: JP-PFIZER INC-PV202500130186

PATIENT
  Age: 64 Year
  Sex: Male

DRUGS (5)
  1. OXALIPLATIN [Suspect]
     Active Substance: OXALIPLATIN
     Indication: Gastric cancer
  2. LEUCOVORIN CALCIUM [Suspect]
     Active Substance: LEUCOVORIN CALCIUM
     Indication: Gastric cancer
  3. TS-1 [Suspect]
     Active Substance: GIMERACIL\OTERACIL POTASSIUM\TEGAFUR
     Indication: Gastric cancer
  4. TEGAFUR [Suspect]
     Active Substance: TEGAFUR
     Indication: Gastric cancer
  5. URACIL [Suspect]
     Active Substance: URACIL
     Indication: Gastric cancer

REACTIONS (3)
  - Portal hypertension [Unknown]
  - Gastric varices [Unknown]
  - Liver disorder [Unknown]
